APPROVED DRUG PRODUCT: XIIDRA
Active Ingredient: LIFITEGRAST
Strength: 5%
Dosage Form/Route: SOLUTION/DROPS;OPHTHALMIC
Application: N208073 | Product #001
Applicant: BAUSCH AND LOMB INC
Approved: Jul 11, 2016 | RLD: Yes | RS: Yes | Type: RX

PATENTS:
Patent 8168655 | Expires: May 9, 2029
Patent 9447077 | Expires: Apr 15, 2029
Patent 8367701 | Expires: Apr 15, 2029
Patent 8592450 | Expires: May 17, 2026
Patent 9890141 | Expires: Oct 21, 2030
Patent 8927574 | Expires: Nov 12, 2030
Patent 9085553 | Expires: Jul 25, 2033
Patent 11058677 | Expires: Dec 18, 2033
Patent 9353088 | Expires: Oct 21, 2030
Patent 8084047 | Expires: May 17, 2026